FAERS Safety Report 8582966-1 (Version None)
Quarter: 2012Q3

REPORT INFORMATION
  Report Type: 
  Country: None (occurrence: None)
  Receive Date: 20120809
  Receipt Date: 20070701
  Transmission Date: 20120928
  Serious: Yes (Other)
  Sender: FDA-Public Use
  Company Number: CO-PFIZER INC-2012190091

PATIENT
  Age: 75 Year
  Sex: Male

DRUGS (8)
  1. ENALAPRIL MALEATE [Concomitant]
     Dosage: 5 MG, 2X/DAY
  2. LOVASTATIN [Concomitant]
     Dosage: 40 MG, 1X/DAY
  3. METOPROLOL TARTRATE [Concomitant]
     Dosage: 50 MG, 3X/DAY
  4. FUROSEMIDE [Concomitant]
     Dosage: 40 MG, 1X/DAY
  5. LIPITOR [Suspect]
     Indication: DYSLIPIDAEMIA
     Dosage: 10 MG, 2X/DAY
  6. LIPITOR [Suspect]
     Dosage: 10 MG, 1X/DAY
  7. ESPIRONOLACTONA [Concomitant]
     Dosage: 25 MG, 2X/DAY
  8. ACETYLSALICYLIC ACID [Concomitant]
     Dosage: 100 MG, 1X/DAY

REACTIONS (2)
  - CARDIAC MURMUR [None]
  - CARDIAC FAILURE [None]
